FAERS Safety Report 5619829-7 (Version None)
Quarter: 2008Q1

REPORT INFORMATION
  Report Type: 
  Country: None (occurrence: None)
  Receive Date: 20080208
  Receipt Date: 20080201
  Transmission Date: 20080703
  Serious: Yes (Hospitalization)
  Sender: FDA-Public Use
  Company Number: PHHO2006BE18014

PATIENT
  Age: 66 Year
  Sex: Male
  Weight: 72 kg

DRUGS (16)
  1. CYA + STEROID FREE VS RAD + ERL [Suspect]
     Indication: RENAL TRANSPLANT
     Dosage: 4MG / DAY
     Route: 048
     Dates: start: 20060719
  2. MEDROL [Suspect]
  3. EMCONCOR [Concomitant]
  4. AMLOR [Concomitant]
  5. COVERSYL [Concomitant]
  6. PRAVASTATIN [Concomitant]
  7. ASPIRIN [Concomitant]
  8. TICLID [Concomitant]
  9. BACTRIM [Concomitant]
  10. OMEPRAZOLE [Concomitant]
  11. CALCIUM CARBONATE [Concomitant]
  12. ONE-ALPHA [Concomitant]
  13. NOVORAPID [Concomitant]
  14. LANTUS [Concomitant]
  15. EZETROL [Concomitant]
  16. NEORAL [Suspect]
     Indication: RENAL TRANSPLANT
     Dosage: 350 MG / DAY
     Route: 048

REACTIONS (1)
  - DIABETES MELLITUS INADEQUATE CONTROL [None]
